FAERS Safety Report 8174316-X (Version None)
Quarter: 2012Q1

REPORT INFORMATION
  Report Type: 
  Country: None (occurrence: None)
  Receive Date: 20120229
  Receipt Date: 20120223
  Transmission Date: 20120608
  Serious: Yes (Death)
  Sender: FDA-Public Use
  Company Number: AU-MERCK-1202USA01112

PATIENT
  Age: 60 Year
  Sex: Female

DRUGS (5)
  1. AMBISOME [Suspect]
     Route: 065
  2. ASPIRIN [Concomitant]
     Route: 065
  3. CANCIDAS [Suspect]
     Route: 042
  4. ANIDULAFUNGIN [Suspect]
     Route: 065
  5. PENTOXIFYLLINE [Concomitant]
     Route: 065

REACTIONS (2)
  - BLOOD BILIRUBIN INCREASED [None]
  - DEATH [None]
